FAERS Safety Report 13628879 (Version 2)
Quarter: 2017Q2

REPORT INFORMATION
  Report Type: Spontaneous
  Country: US (occurrence: US)
  Receive Date: 20170608
  Receipt Date: 20170627
  Transmission Date: 20170830
  Serious: No
  Sender: FDA-Public Use
  Company Number: US-PFIZER INC-2017239514

PATIENT
  Age: 55 Year
  Sex: Female
  Weight: 124 kg

DRUGS (18)
  1. METOPROLOL. [Concomitant]
     Active Substance: METOPROLOL
     Dosage: UNK
     Dates: start: 20131010
  2. PARAPLATIN [Concomitant]
     Active Substance: CARBOPLATIN
     Indication: CHEMOTHERAPY
     Dosage: UNK
  3. PLAQUENIL [Concomitant]
     Active Substance: HYDROXYCHLOROQUINE SULFATE
     Dosage: UNK
     Dates: start: 20090515
  4. TAXOTERE [Suspect]
     Active Substance: DOCETAXEL
     Indication: CHEMOTHERAPY
     Dosage: UNK
     Dates: start: 20140226, end: 20140625
  5. NEULASTA [Concomitant]
     Active Substance: PEGFILGRASTIM
     Dosage: UNK
  6. AMBIEN [Concomitant]
     Active Substance: ZOLPIDEM TARTRATE
     Dosage: UNK
     Dates: start: 2009, end: 2014
  7. CARBOPLATIN. [Concomitant]
     Active Substance: CARBOPLATIN
     Indication: CHEMOTHERAPY
  8. DOCETAXEL. [Suspect]
     Active Substance: DOCETAXEL
     Indication: CHEMOTHERAPY
     Dosage: UNK, EVERY 3 WEEKS, SIX CYCLES
     Dates: start: 20140226, end: 20140625
  9. HYZAAR [Concomitant]
     Active Substance: HYDROCHLOROTHIAZIDE\LOSARTAN POTASSIUM
     Dosage: UNK
     Dates: start: 20060328
  10. TIZANIDINE. [Concomitant]
     Active Substance: TIZANIDINE
     Dosage: UNK
     Dates: start: 20110131, end: 20140415
  11. HERCEPTIN [Concomitant]
     Active Substance: TRASTUZUMAB
     Indication: CHEMOTHERAPY
     Dosage: UNK
  12. DOCETAXEL. [Suspect]
     Active Substance: DOCETAXEL
     Indication: BREAST CANCER FEMALE
  13. DECADRON [Concomitant]
     Active Substance: DEXAMETHASONE
     Dosage: UNK
  14. OXYCONTIN [Concomitant]
     Active Substance: OXYCODONE HYDROCHLORIDE
     Dosage: UNK
     Dates: start: 20100218
  15. TRAZODONE [Concomitant]
     Active Substance: TRAZODONE HYDROCHLORIDE
     Dosage: UNK
     Dates: start: 20120208
  16. ASPIRIN. [Concomitant]
     Active Substance: ASPIRIN
     Dosage: UNK
  17. ZANAFLEX [Concomitant]
     Active Substance: TIZANIDINE HYDROCHLORIDE
     Dosage: UNK
  18. METFORMIN [Concomitant]
     Active Substance: METFORMIN HYDROCHLORIDE
     Dosage: UNK
     Dates: start: 20121128

REACTIONS (5)
  - Hair texture abnormal [Unknown]
  - Hair disorder [Unknown]
  - Hair colour changes [Unknown]
  - Madarosis [Unknown]
  - Alopecia [Unknown]

NARRATIVE: CASE EVENT DATE: 201403
